FAERS Safety Report 6018743-5 (Version None)
Quarter: 2008Q4

REPORT INFORMATION
  Report Type: 
  Country: None (occurrence: None)
  Receive Date: 20081222
  Receipt Date: 20081203
  Transmission Date: 20090506
  Serious: Yes (Hospitalization, Disabling)
  Sender: FDA-Public Use
  Company Number: 2008PL000278

PATIENT
  Age: 29 Year
  Sex: Male

DRUGS (7)
  1. LABETALOL HCL [Suspect]
     Indication: HYPERTENSION
  2. SODIUM NITROPRUSSIDE [Concomitant]
  3. EPOIETIN [Concomitant]
  4. IRON [Concomitant]
  5. DARBEPOETIN [Concomitant]
  6. FERROUS GLUCONATE [Concomitant]
  7. BLOOD (RE-INFUSION) [Concomitant]

REACTIONS (8)
  - CEREBRAL ARTERY EMBOLISM [None]
  - CEREBRAL ARTERY OCCLUSION [None]
  - CEREBRAL INFARCTION [None]
  - COGNITIVE DISORDER [None]
  - DYSARTHRIA [None]
  - HAEMODIALYSIS [None]
  - RENAL FAILURE [None]
  - RESPIRATORY FAILURE [None]
